FAERS Safety Report 4380342-9 (Version None)
Quarter: 2004Q2

REPORT INFORMATION
  Report Type: 
  Country: None (occurrence: None)
  Receive Date: 20040616
  Receipt Date: 20040616
  Transmission Date: 20050107
  Serious: Yes (Hospitalization, Other)
  Sender: FDA-Public Use
  Company Number: None

PATIENT
  Age: 50 Year
  Sex: Male
  Weight: 104.4 kg

DRUGS (9)
  1. INTEGRILIN [Suspect]
     Indication: ANTIPLATELET THERAPY
     Dosage: 2 (9.5 ML BOLUSES) 17ML/HR IV
     Route: 042
     Dates: start: 20040603, end: 20040604
  2. HEPARIN [Suspect]
     Dosage: 5.225
     Dates: start: 20040603
  3. MIDAZOLAM HCL [Concomitant]
  4. NITROGLYCERIN [Concomitant]
  5. FENTANYL [Concomitant]
  6. CEFAZOLIN [Concomitant]
  7. ASPIRIN [Concomitant]
  8. PEPCID [Concomitant]
  9. CLOPIDOGREL BISULFATE [Concomitant]

REACTIONS (2)
  - ECCHYMOSIS [None]
  - POST PROCEDURAL COMPLICATION [None]
